FAERS Safety Report 9195979 (Version 2)
Quarter: 2013Q2

REPORT INFORMATION
  Report Type: Spontaneous
  Country: US (occurrence: US)
  Receive Date: 20130328
  Receipt Date: 20130603
  Transmission Date: 20140414
  Serious: Yes (Other)
  Sender: FDA-Public Use
  Company Number: PHEH2013US006786

PATIENT
  Sex: Male

DRUGS (2)
  1. EXELON PATCH [Suspect]
     Route: 062
     Dates: start: 201208
  2. ANTIBIOTICS [Concomitant]

REACTIONS (6)
  - Deep vein thrombosis [Unknown]
  - Amnesia [Unknown]
  - Memory impairment [Recovering/Resolving]
  - Skin irritation [Unknown]
  - Application site pruritus [Unknown]
  - Application site swelling [Unknown]
